FAERS Safety Report 16563325 (Version 1)
Quarter: 2019Q3

REPORT INFORMATION
  Report Type: Spontaneous
  Country: US (occurrence: US)
  Receive Date: 20190711
  Receipt Date: 20190711
  Transmission Date: 20191004
  Serious: Yes (Hospitalization)
  Sender: FDA-Public Use
  Company Number: US-PIRAMAL ENTERPRISES LIMITED-2019-PEL-000207

PATIENT

DRUGS (2)
  1. GABLOFEN [Suspect]
     Active Substance: BACLOFEN
     Indication: BRAIN INJURY
     Dosage: 1375 MICROGRAM PER DAY
     Route: 037
  2. GABLOFEN [Suspect]
     Active Substance: BACLOFEN
     Indication: MUSCLE SPASTICITY
     Dosage: 2205 MICROGRAMS PER DAY
     Route: 037

REACTIONS (8)
  - Lethargy [Recovering/Resolving]
  - Somnolence [Recovering/Resolving]
  - Device issue [Recovering/Resolving]
  - Pyrexia [Recovering/Resolving]
  - Agitation [Recovering/Resolving]
  - Device difficult to use [Recovering/Resolving]
  - Muscle spasticity [Recovering/Resolving]
  - Feeling abnormal [Recovering/Resolving]

NARRATIVE: CASE EVENT DATE: 20190619
